FAERS Safety Report 5603382-8 (Version None)
Quarter: 2008Q1

REPORT INFORMATION
  Report Type: 
  Country: None (occurrence: None)
  Receive Date: 20080122
  Receipt Date: 20080107
  Transmission Date: 20080703
  Serious: Yes (Other)
  Sender: FDA-Public Use
  Company Number: S08-UKI-00177-01

PATIENT
  Age: 24 Year
  Sex: Female
  Weight: 65 kg

DRUGS (1)
  1. CITALOPRAM HYDROBROMIDE [Suspect]
     Dosage: 20 MG QD PO
     Route: 048
     Dates: start: 20071204

REACTIONS (3)
  - MYDRIASIS [None]
  - PHOTOPHOBIA [None]
  - PUPILS UNEQUAL [None]
